FAERS Safety Report 10494920 (Version 3)
Quarter: 2014Q4

REPORT INFORMATION
  Report Type: Spontaneous
  Country: US (occurrence: None)
  Receive Date: 20141001
  Receipt Date: 20141126
  Transmission Date: 20150528
  Serious: Yes (Hospitalization, Other)
  Sender: FDA-Public Use
  Company Number: 2014-20408

PATIENT
  Age: 86 Year
  Sex: Female

DRUGS (4)
  1. EYLEA [Suspect]
     Active Substance: AFLIBERCEPT
     Route: 031
     Dates: start: 20140404
  2. EYLEA [Suspect]
     Active Substance: AFLIBERCEPT
     Indication: NEOVASCULAR AGE-RELATED MACULAR DEGENERATION
     Route: 031
     Dates: start: 20140404
  3. LUCENTIS [Suspect]
     Active Substance: RANIBIZUMAB
     Indication: NEOVASCULAR AGE-RELATED MACULAR DEGENERATION
     Dosage: AS NEEDED BOTH EYES
     Route: 031
  4. AVASTIN [Suspect]
     Active Substance: BEVACIZUMAB
     Indication: NEOVASCULAR AGE-RELATED MACULAR DEGENERATION
     Dosage: AS NEEDED, BOTH EYES 2 MG (MILLIGRAM(S) OD, UNK, INTRACOCULAR
     Route: 031

REACTIONS (9)
  - Vitrectomy [None]
  - Drug hypersensitivity [None]
  - Vitreal cells [None]
  - Visual acuity reduced [None]
  - Anterior chamber cell [None]
  - Rash [None]
  - Eye inflammation [None]
  - Corneal deposits [None]
  - Disease progression [None]

NARRATIVE: CASE EVENT DATE: 2013
